FAERS Safety Report 15592230 (Version 2)
Quarter: 2022Q1

REPORT INFORMATION
  Report Type: Spontaneous
  Country: AT (occurrence: AT)
  Receive Date: 20181107
  Receipt Date: 20220130
  Transmission Date: 20220423
  Serious: Yes (Death, Hospitalization, Other)
  Sender: FDA-Public Use
  Company Number: AT-JAZZ-2018-AT-016231

PATIENT
  Age: 32 Year
  Sex: Female

DRUGS (1)
  1. DEFITELIO [Suspect]
     Active Substance: DEFIBROTIDE SODIUM
     Dosage: UNK
     Dates: start: 2017, end: 2017

REACTIONS (3)
  - Acute myeloid leukaemia recurrent [Fatal]
  - Gastrointestinal haemorrhage [Recovering/Resolving]
  - Off label use [Fatal]

NARRATIVE: CASE EVENT DATE: 20170901
